FAERS Safety Report 10750877 (Version 1)
Quarter: 2015Q1

REPORT INFORMATION
  Report Type: Spontaneous
  Country: US (occurrence: None)
  Receive Date: 20150129
  Receipt Date: 20150129
  Transmission Date: 20150721
  Serious: Yes (Other)
  Sender: FDA-Public Use
  Company Number: None

PATIENT
  Age: 27 Year
  Sex: Male
  Weight: 88.45 kg

DRUGS (1)
  1. HUMIRA [Suspect]
     Active Substance: ADALIMUMAB
     Dosage: STRENGTH: 160MG, DOSE FORM: INJECTABLE, ROUTE: SUBCUTANEOUS 057, FREQUENCY: QOWK
     Route: 058
     Dates: start: 20150120

REACTIONS (8)
  - Dizziness [None]
  - Feeling abnormal [None]
  - Headache [None]
  - Obstruction [None]
  - Abnormal dreams [None]
  - Abdominal pain [None]
  - Scar [None]
  - Confusional state [None]

NARRATIVE: CASE EVENT DATE: 20150120
